FAERS Safety Report 19929556 (Version 7)
Quarter: 2023Q2

REPORT INFORMATION
  Report Type: Report from Study
  Country: CO (occurrence: CO)
  Receive Date: 20211007
  Receipt Date: 20230428
  Transmission Date: 20230721
  Serious: Yes (Other)
  Sender: FDA-Public Use
  Company Number: CO-NOVARTISPH-NVSC2021CO129829

PATIENT
  Sex: Female

DRUGS (4)
  1. KISQALI [Suspect]
     Active Substance: RIBOCICLIB
     Indication: Breast cancer metastatic
     Dosage: UNK UNK, QD
     Route: 048
  2. KISQALI [Suspect]
     Active Substance: RIBOCICLIB
     Dosage: 600 MG, QD
     Route: 048
  3. KISQALI [Suspect]
     Active Substance: RIBOCICLIB
     Dosage: UNK
     Route: 048
     Dates: end: 20230416
  4. FEMARA [Suspect]
     Active Substance: LETROZOLE
     Indication: Breast cancer
     Dosage: UNK
     Route: 048

REACTIONS (15)
  - Metastases to liver [Unknown]
  - Metastases to kidney [Unknown]
  - Metastases to bone [Unknown]
  - Metastases to lung [Unknown]
  - Pneumonia [Unknown]
  - Pain [Unknown]
  - Painful respiration [Unknown]
  - Crying [Unknown]
  - Pain in extremity [Unknown]
  - Insomnia [Unknown]
  - Bone pain [Unknown]
  - Drug intolerance [Unknown]
  - Vomiting [Unknown]
  - Back pain [Recovering/Resolving]
  - Drug ineffective [Unknown]
